FAERS Safety Report 4516565-5 (Version None)
Quarter: 2004Q4

REPORT INFORMATION
  Report Type: 
  Country: None (occurrence: None)
  Receive Date: 20041202
  Receipt Date: 20040924
  Transmission Date: 20050328
  Serious: Yes (Life-Threatening, Hospitalization)
  Sender: FDA-Public Use
  Company Number: ES-ROCHE-381433

PATIENT
  Age: 68 Year
  Sex: Male
  Weight: 75 kg

DRUGS (8)
  1. CAPECITABINE [Suspect]
     Dosage: ON DAYS ONE THROUGH FOURTEEN OF A TWENTY-ONE DAY CYCLE
     Route: 048
     Dates: start: 20040906, end: 20040916
  2. CAPECITABINE [Suspect]
     Route: 048
     Dates: start: 20041110, end: 20041119
  3. OXALIPLATIN [Suspect]
     Route: 042
     Dates: start: 20040906, end: 20040906
  4. OXALIPLATIN [Suspect]
     Dosage: DOSE REPORTED AS 243MG DAILY
     Route: 042
     Dates: start: 20041110, end: 20041110
  5. BISOPROLOL FUMARATE [Suspect]
     Indication: HYPERTENSION
     Route: 048
     Dates: start: 19930615
  6. ENOXAPARINE [Suspect]
     Indication: ANTICOAGULANT THERAPY
     Route: 058
     Dates: start: 20040907, end: 20040915
  7. ENOXAPARINE [Suspect]
     Route: 058
     Dates: start: 20040915
  8. ENOXAPARINE [Suspect]
     Route: 058
     Dates: start: 20040922, end: 20041118

REACTIONS (2)
  - CEREBRAL HAEMATOMA [None]
  - HAEMATURIA [None]
